FAERS Safety Report 4588413-9 (Version None)
Quarter: 2005Q1

REPORT INFORMATION
  Report Type: 
  Country: None (occurrence: None)
  Receive Date: 20050215
  Receipt Date: 20050215
  Transmission Date: 20050727
  Serious: Yes (Hospitalization)
  Sender: FDA-Public Use
  Company Number: None

PATIENT
  Sex: Male
  Weight: 102.9665 kg

DRUGS (2)
  1. NATRECOR [Suspect]
     Indication: CARDIAC FAILURE CONGESTIVE
     Dosage: 1 MCG/KG BOL  ONCE  INTRAVENOU;  0.01 MCG/KG/    CONTINUOUS   INTRAVENOU
     Route: 040
     Dates: start: 20040925, end: 20040926
  2. NATRECOR [Suspect]
     Indication: PULMONARY OEDEMA
     Dosage: 1 MCG/KG BOL  ONCE  INTRAVENOU;  0.01 MCG/KG/    CONTINUOUS   INTRAVENOU
     Route: 040
     Dates: start: 20040925, end: 20040926

REACTIONS (1)
  - HYPOTENSION [None]
